FAERS Safety Report 5815637-2 (Version None)
Quarter: 2008Q3

REPORT INFORMATION
  Report Type: 
  Country: None (occurrence: None)
  Receive Date: 20080716
  Receipt Date: 20080707
  Transmission Date: 20090109
  Serious: Yes (Hospitalization)
  Sender: FDA-Public Use
  Company Number: 163-21880-08061349

PATIENT
  Age: 75 Year
  Sex: Male

DRUGS (10)
  1. REVLIMID [Suspect]
     Indication: MULTIPLE MYELOMA
     Dosage: 10 MG, DAILY X 21 DAYS, ORAL; 25 MG, DAILY X 21 DAYS, ORAL
     Route: 048
     Dates: start: 20080401, end: 20080601
  2. REVLIMID [Suspect]
     Indication: MULTIPLE MYELOMA
     Dosage: 10 MG, DAILY X 21 DAYS, ORAL; 25 MG, DAILY X 21 DAYS, ORAL
     Route: 048
     Dates: start: 20080609
  3. DEXAMETHASONE TAB [Concomitant]
  4. ZOCOR [Concomitant]
  5. LISINOPRIL [Concomitant]
  6. AVANDIA [Concomitant]
  7. TOPROL-XL [Concomitant]
  8. ZANTAC [Concomitant]
  9. AGGRENOX [Concomitant]
  10. GABAPENTIN [Concomitant]

REACTIONS (10)
  - ANOREXIA [None]
  - ARTHRALGIA [None]
  - ASTHENIA [None]
  - CHOLELITHOTOMY [None]
  - JOINT STIFFNESS [None]
  - LETHARGY [None]
  - MALAISE [None]
  - MUSCULOSKELETAL STIFFNESS [None]
  - PRURITUS [None]
  - RASH [None]
